FAERS Safety Report 6971912-X (Version None)
Quarter: 2010Q3

REPORT INFORMATION
  Report Type: 
  Country: None (occurrence: None)
  Receive Date: 20100908
  Receipt Date: 20100908
  Transmission Date: 20110219
  Serious: Yes (Life-Threatening, Hospitalization)
  Sender: FDA-Public Use
  Company Number: None

PATIENT
  Age: 63 Year
  Sex: Male
  Weight: 94.62 kg

DRUGS (2)
  1. TOPOTECAN [Suspect]
     Indication: METASTASES TO LIVER
     Dates: start: 20100706, end: 20100814
  2. TOPOTECAN [Suspect]
     Indication: NEUROENDOCRINE TUMOUR
     Dates: start: 20100706, end: 20100814

REACTIONS (6)
  - BLOOD CULTURE POSITIVE [None]
  - FEBRILE NEUTROPENIA [None]
  - HYPOTENSION [None]
  - MENTAL STATUS CHANGES [None]
  - PANCYTOPENIA [None]
  - PSEUDOMONAL BACTERAEMIA [None]
